FAERS Safety Report 6248396-2 (Version None)
Quarter: 2009Q2

REPORT INFORMATION
  Report Type: 
  Country: None (occurrence: None)
  Receive Date: 20090629
  Receipt Date: 20090623
  Transmission Date: 20091009
  Serious: Yes (Death, Hospitalization, Other)
  Sender: FDA-Public Use
  Company Number: PHEH2008US09962

PATIENT
  Sex: Female

DRUGS (3)
  1. ZOMETA [Suspect]
  2. MULTI-VITAMINS [Concomitant]
  3. CALCIUM [Concomitant]

REACTIONS (22)
  - ANXIETY [None]
  - ARTHRALGIA [None]
  - BREAST CANCER [None]
  - BREAST CANCER METASTATIC [None]
  - BRONCHITIS [None]
  - CONFUSIONAL STATE [None]
  - DECREASED INTEREST [None]
  - DEPRESSED LEVEL OF CONSCIOUSNESS [None]
  - DIZZINESS [None]
  - DYSARTHRIA [None]
  - GAIT DISTURBANCE [None]
  - GENERAL PHYSICAL HEALTH DETERIORATION [None]
  - HEADACHE [None]
  - HYDROCEPHALUS [None]
  - JOINT SWELLING [None]
  - MENINGITIS [None]
  - OSTEONECROSIS [None]
  - PAIN [None]
  - PLEURAL EFFUSION [None]
  - UNRESPONSIVE TO STIMULI [None]
  - UPPER RESPIRATORY TRACT INFECTION [None]
  - VOMITING [None]
